FAERS Safety Report 17282927 (Version 1)
Quarter: 2020Q1

REPORT INFORMATION
  Report Type: Spontaneous
  Country: JP (occurrence: JP)
  Receive Date: 20200117
  Receipt Date: 20200117
  Transmission Date: 20200409
  Serious: Yes (Other)
  Sender: FDA-Public Use
  Company Number: JP-ASTRAZENECA-2020SE07544

PATIENT
  Age: 65 Year
  Sex: Female

DRUGS (3)
  1. FASENRA [Suspect]
     Active Substance: BENRALIZUMAB
     Indication: ASTHMA
     Dosage: DOSE: UNKNOWN
     Route: 058
  2. SYMBICORT [Suspect]
     Active Substance: BUDESONIDE\FORMOTEROL FUMARATE DIHYDRATE
     Indication: ASTHMA
     Dosage: STRENGTH: 30 DOSES.2 DF TWO PUFFS TWICE DAILY.
     Route: 055
  3. SYMBICORT [Suspect]
     Active Substance: BUDESONIDE\FORMOTEROL FUMARATE DIHYDRATE
     Indication: ASTHMA
     Dosage: STRENGTH: 30 DOSES, 4 DF TWO TIMES A DAY.
     Route: 055

REACTIONS (5)
  - Nasopharyngitis [Unknown]
  - Headache [Recovering/Resolving]
  - Asthma [Recovered/Resolved]
  - Pyrexia [Recovering/Resolving]
  - Drug ineffective [Unknown]
